FAERS Safety Report 7884120-5 (Version None)
Quarter: 2011Q4

REPORT INFORMATION
  Report Type: 
  Country: None (occurrence: None)
  Receive Date: 20111102
  Receipt Date: 20111027
  Transmission Date: 20120403
  Serious: Yes (Death, Hospitalization)
  Sender: FDA-Public Use
  Company Number: CA-CELGENEUS-028-21880-11101788

PATIENT
  Sex: Male
  Weight: 71 kg

DRUGS (3)
  1. REVLIMID [Suspect]
  2. MELPHALAN HYDROCHLORIDE [Suspect]
     Dosage: 2 MILLIGRAM
     Route: 048
     Dates: start: 20110219, end: 20111012
  3. REVLIMID [Suspect]
     Dosage: 5 MILLIGRAM
     Route: 048
     Dates: start: 20110219, end: 20111012

REACTIONS (2)
  - ACUTE LEUKAEMIA [None]
  - CHRONIC MYELOMONOCYTIC LEUKAEMIA [None]
